FAERS Safety Report 10607100 (Version 1)
Quarter: 2014Q4

REPORT INFORMATION
  Report Type: Spontaneous
  Country: US (occurrence: IT)
  Receive Date: 20141125
  Receipt Date: 20141125
  Transmission Date: 20150529
  Serious: Yes (Other)
  Sender: FDA-Public Use
  Company Number: IT-FRI-1000072612

PATIENT
  Age: 65 Year
  Sex: Male

DRUGS (7)
  1. ASENAPINE [Suspect]
     Active Substance: ASENAPINE
     Dosage: 1 DF
     Route: 060
     Dates: start: 20141113, end: 20141114
  2. VENTOLIN [Concomitant]
     Active Substance: ALBUTEROL SULFATE
  3. CARDIOASPIRIN [Concomitant]
     Active Substance: ASPIRIN
  4. OMEPRAZOLE. [Concomitant]
     Active Substance: OMEPRAZOLE
  5. GLICLAZIDE [Concomitant]
     Active Substance: GLICLAZIDE
  6. FUROSEMIDE. [Concomitant]
     Active Substance: FUROSEMIDE
  7. SEROQUEL [Concomitant]
     Active Substance: QUETIAPINE FUMARATE
     Dosage: 25 MG

REACTIONS (3)
  - Aphasia [Recovering/Resolving]
  - Bradykinesia [Recovering/Resolving]
  - Fall [Recovering/Resolving]

NARRATIVE: CASE EVENT DATE: 20141113
